FAERS Safety Report 25836035 (Version 1)
Quarter: 2025Q3

REPORT INFORMATION
  Report Type: Spontaneous
  Country: US (occurrence: None)
  Receive Date: 20250922
  Receipt Date: 20250922
  Transmission Date: 20251021
  Serious: Yes (Hospitalization)
  Sender: FDA-CTU
  Company Number: None

PATIENT
  Age: 66 Year
  Sex: Female
  Weight: 59 kg

DRUGS (1)
  1. OFEV [Suspect]
     Active Substance: NINTEDANIB
     Indication: Pulmonary fibrosis
     Dates: start: 20240301, end: 20250102

REACTIONS (5)
  - Diverticulitis [None]
  - Therapy cessation [None]
  - Lung transplant [None]
  - Diverticular perforation [None]
  - Bladder disorder [None]

NARRATIVE: CASE EVENT DATE: 20250630
